FAERS Safety Report 11409215 (Version 4)
Quarter: 2016Q2

REPORT INFORMATION
  Report Type: Spontaneous
  Country: BR (occurrence: BR)
  Receive Date: 20150824
  Receipt Date: 20160404
  Transmission Date: 20160815
  Serious: Yes (Death, Hospitalization, Other)
  Sender: FDA-Public Use
  Company Number: BR-PFIZER INC-2015268686

PATIENT
  Age: 63 Year
  Sex: Male

DRUGS (5)
  1. SUTENT [Suspect]
     Active Substance: SUNITINIB MALATE
     Indication: METASTATIC RENAL CELL CARCINOMA
     Dosage: 50 MG, CYCLE 4X2
     Route: 048
     Dates: start: 20150630
  2. SUTENT [Suspect]
     Active Substance: SUNITINIB MALATE
     Dosage: 50 MG, UNK
     Route: 048
     Dates: start: 201506
  3. DORFLEX [Concomitant]
     Active Substance: CAFFEINE\DIPYRONE\ORPHENADRINE
     Dosage: UNK
  4. MORPHINE [Concomitant]
     Active Substance: MORPHINE
     Dosage: UNK
  5. LACTULONA [Concomitant]
     Dosage: UNK

REACTIONS (15)
  - Metastatic renal cell carcinoma [Fatal]
  - Pulmonary oedema [Not Recovered/Not Resolved]
  - Disease progression [Fatal]
  - Chest pain [Not Recovered/Not Resolved]
  - Blood disorder [Not Recovered/Not Resolved]
  - Infection [Not Recovered/Not Resolved]
  - Haemoptysis [Not Recovered/Not Resolved]
  - Retching [Not Recovered/Not Resolved]
  - Dyspnoea [Not Recovered/Not Resolved]
  - Ear injury [Unknown]
  - Decreased appetite [Not Recovered/Not Resolved]
  - Cerebral disorder [Unknown]
  - Visual impairment [Unknown]
  - Fungal infection [Unknown]
  - Scratch [Unknown]

NARRATIVE: CASE EVENT DATE: 2015
